FAERS Safety Report 4423459-2 (Version None)
Quarter: 2004Q3

REPORT INFORMATION
  Report Type: 
  Country: None (occurrence: None)
  Receive Date: 20040713
  Receipt Date: 20040326
  Transmission Date: 20050211
  Serious: No
  Sender: FDA-Public Use
  Company Number: PHEH2004US03549

PATIENT
  Age: 58 Year
  Sex: Male

DRUGS (1)
  1. ELIDEL [Suspect]
     Indication: SEBORRHOEIC DERMATITIS
     Dosage: ONCE/ SINGLE, TOPICAL
     Route: 061
     Dates: start: 20031001

REACTIONS (1)
  - DERMATITIS EXFOLIATIVE [None]
